FAERS Safety Report 11514510 (Version 1)
Quarter: 2015Q3

REPORT INFORMATION
  Report Type: Spontaneous
  Country: GB (occurrence: GB)
  Receive Date: 20150916
  Receipt Date: 20150916
  Transmission Date: 20151125
  Serious: Yes (Other)
  Sender: FDA-Public Use
  Company Number: GB-SA-2015SA138347

PATIENT
  Age: 68 Year
  Sex: Female
  Weight: 55 kg

DRUGS (2)
  1. LEVOTHYROXINE. [Concomitant]
     Active Substance: LEVOTHYROXINE
     Dosage: EACH MORNING
     Route: 065
     Dates: start: 20150527
  2. ENOXAPARIN SODIUM. [Suspect]
     Active Substance: ENOXAPARIN SODIUM
     Route: 065
     Dates: start: 20150901

REACTIONS (3)
  - Eczema [Unknown]
  - Drug eruption [Not Recovered/Not Resolved]
  - Injection site vesicles [Unknown]

NARRATIVE: CASE EVENT DATE: 20150901
